FAERS Safety Report 8487901-2 (Version None)
Quarter: 2012Q3

REPORT INFORMATION
  Report Type: 
  Country: None (occurrence: None)
  Receive Date: 20120705
  Receipt Date: 20120626
  Transmission Date: 20120928
  Serious: Yes (Other)
  Sender: FDA-Public Use
  Company Number: BR-PFIZER INC-2012153505

PATIENT
  Age: 74 Year
  Sex: Female
  Weight: 74 kg

DRUGS (4)
  1. ENALAPRIL [Concomitant]
     Indication: HYPERTENSION
     Dosage: 10 MG (ONE TABLET), 2X/DAY
     Dates: start: 20050101
  2. TIMOLOL MALEATE [Concomitant]
     Indication: GLAUCOMA
     Dosage: ONE DROP IN EACH EYE TWICE DAILY
     Dates: start: 20050101
  3. XALATAN [Suspect]
     Indication: GLAUCOMA
     Dosage: 3 UG (ONE DROP IN EACH EYE), 1X/DAY
     Route: 047
     Dates: start: 20050101
  4. ATENOLOL [Concomitant]
     Indication: HYPERTENSION
     Dosage: 50 MG (ONE TABLET), 2X/DAY
     Dates: start: 20050101

REACTIONS (1)
  - TOOTH DISORDER [None]
